FAERS Safety Report 10026984 (Version 1)
Quarter: 2014Q1

REPORT INFORMATION
  Report Type: Spontaneous
  Country: DE (occurrence: DE)
  Receive Date: 20140321
  Receipt Date: 20140321
  Transmission Date: 20141002
  Serious: Yes (Other)
  Sender: FDA-Public Use
  Company Number: DE-JNJFOC-20140306947

PATIENT
  Age: 47 Year
  Sex: Male

DRUGS (1)
  1. TOPIRAMATE [Suspect]
     Indication: HEADACHE
     Route: 048

REACTIONS (2)
  - Mental disorder [Unknown]
  - Hallucination [Unknown]
